FAERS Safety Report 10789447 (Version 1)
Quarter: 2015Q1

REPORT INFORMATION
  Report Type: Report from Study
  Country: US (occurrence: US)
  Receive Date: 20150212
  Receipt Date: 20150212
  Transmission Date: 20150721
  Serious: Yes (Hospitalization)
  Sender: FDA-Public Use
  Company Number: US-ACTELION-A-NJ2015-112356

PATIENT
  Age: 9 Month
  Sex: Male

DRUGS (4)
  1. TRACLEER [Suspect]
     Active Substance: BOSENTAN\BOSENTAN MONOHYDRATE
     Indication: PULMONARY ARTERIAL HYPERTENSION
     Dosage: 7.812 MG, BID
     Route: 048
     Dates: start: 20141020
  2. ALDACTAZIDE [Concomitant]
     Active Substance: HYDROCHLOROTHIAZIDE\SPIRONOLACTONE
  3. SILDENAFIL. [Concomitant]
     Active Substance: SILDENAFIL
  4. IRON [Concomitant]
     Active Substance: IRON

REACTIONS (1)
  - Persistent foetal circulation [Not Recovered/Not Resolved]

NARRATIVE: CASE EVENT DATE: 20150119
